FAERS Safety Report 7124863-4 (Version None)
Quarter: 2010Q4

REPORT INFORMATION
  Report Type: 
  Country: None (occurrence: None)
  Receive Date: 20101123
  Receipt Date: 20101123
  Transmission Date: 20110411
  Serious: Yes (Disabling, Other)
  Sender: FDA-Public Use
  Company Number: None

PATIENT
  Age: 19 Year
  Sex: Female
  Weight: 54.4316 kg

DRUGS (2)
  1. CIPRO [Suspect]
     Indication: KIDNEY INFECTION
     Dosage: 500MG /200CC 1 TIME IV DRIP
     Route: 041
     Dates: start: 20101118, end: 20101118
  2. CIPROFLOXACIN [Suspect]
     Indication: KIDNEY INFECTION
     Dosage: 500MG 2 X DAY PO
     Route: 048
     Dates: start: 20101119, end: 20101121

REACTIONS (4)
  - MUSCLE TIGHTNESS [None]
  - MYALGIA [None]
  - PAIN IN EXTREMITY [None]
  - TENDON RUPTURE [None]
